FAERS Safety Report 10209589 (Version 3)
Quarter: 2014Q2

REPORT INFORMATION
  Report Type: Report from Study
  Country: US (occurrence: US)
  Receive Date: 20140602
  Receipt Date: 20140630
  Transmission Date: 20141212
  Serious: Yes (Hospitalization, Other)
  Sender: FDA-Public Use
  Company Number: US-ROCHE-1366308

PATIENT
  Sex: Female

DRUGS (20)
  1. XOLAIR [Suspect]
     Indication: ASTHMA
     Route: 065
  2. ADVAIR [Concomitant]
     Indication: ASTHMA
     Dosage: 250/50 MC
     Route: 065
  3. SINGULAIR [Concomitant]
     Indication: ASTHMA
     Dosage: AT BREAKFAST
     Route: 065
  4. PREDNISONE [Concomitant]
  5. SPIRIVA [Concomitant]
     Dosage: 1 AT NIGHT
     Route: 065
  6. NASONEX [Concomitant]
     Dosage: TWICE A DAY, MORNING AND EVENING, EACH NOSTRIL
     Route: 065
  7. DULERA [Concomitant]
     Dosage: TWICE A DAY, HAS BEEN DISCONTINUED
     Route: 065
  8. JANUMET [Concomitant]
     Dosage: ON HOLD
     Route: 065
  9. NEURONTIN (UNITED STATES) [Concomitant]
  10. PROTONIX (OMEPRAZOLE) [Concomitant]
     Dosage: WITH BREAKFAST AND SUPPER
     Route: 065
  11. VISTARIL [Concomitant]
     Dosage: FOR BREAKING OUT AND ITCHING
     Route: 065
  12. TOPAMAX [Concomitant]
     Dosage: 2 A DAY AT BREAKFAST AND SUPPER
     Route: 065
  13. RANITIDINE [Concomitant]
     Dosage: THROAT BURING
     Route: 065
  14. CYCLOBENZAPRINE [Concomitant]
     Dosage: AT BEDTIME
     Route: 065
  15. GLYNASE [Concomitant]
     Indication: DIABETES MELLITUS
     Dosage: TWICE DAILY
     Route: 065
  16. WELLBUTRIN [Concomitant]
     Dosage: AT BREAKFAST AND SUPPER
     Route: 065
  17. XANAX [Concomitant]
     Dosage: 1 IN MORNING + AFTERNOON, 2 AT BEDTIME
     Route: 065
  18. CYMBALTA [Concomitant]
     Dosage: AT BREAKFAST AND BEDTIME
     Route: 065
  19. IPRATROPIUM BROMIDE [Concomitant]
     Dosage: 4 TIMES A DAY
     Route: 065
  20. ALENDRONATE [Concomitant]
     Dosage: 4 ON MONDAY FOR 4 WEEKS
     Route: 065

REACTIONS (14)
  - Pulmonary mass [Unknown]
  - Lung neoplasm [Unknown]
  - Blood gases abnormal [Unknown]
  - Respiratory disorder [Unknown]
  - Dyspnoea [Unknown]
  - Pneumonia [Unknown]
  - Cough [Unknown]
  - Pallor [Unknown]
  - Vomiting [Unknown]
  - Lung disorder [Unknown]
  - Weight increased [Unknown]
  - Memory impairment [Unknown]
  - Pulmonary cavitation [Unknown]
  - Chest discomfort [Unknown]
